FAERS Safety Report 20516869 (Version 1)
Quarter: 2022Q1

REPORT INFORMATION
  Report Type: Spontaneous
  Country: CA (occurrence: CA)
  Receive Date: 20220225
  Receipt Date: 20220225
  Transmission Date: 20220424
  Serious: Yes (Hospitalization, Other)
  Sender: FDA-Public Use
  Company Number: CA-TEVA-2022-CA-2010337

PATIENT
  Age: 30 Year
  Sex: Male

DRUGS (7)
  1. AMOXICILLIN [Suspect]
     Active Substance: AMOXICILLIN
     Indication: Pneumonia
     Route: 065
  2. CIPROFLOXACIN LACTATE [Suspect]
     Active Substance: CIPROFLOXACIN LACTATE
     Indication: Pneumonia serratia
     Route: 065
  3. CIPROFLOXACIN LACTATE [Suspect]
     Active Substance: CIPROFLOXACIN LACTATE
     Indication: Pneumonia
     Route: 065
  4. IBUPROFEN [Suspect]
     Active Substance: IBUPROFEN
     Indication: Pericarditis
     Route: 065
  5. COLCHICINE [Suspect]
     Active Substance: COLCHICINE
     Indication: Pericarditis
     Route: 065
  6. FLAXSEED [Suspect]
     Active Substance: FLAX SEED
     Indication: Dry mouth
     Route: 065
  7. HERBALS [Suspect]
     Active Substance: HERBALS
     Indication: Sinusitis
     Route: 065

REACTIONS (6)
  - Arthralgia [Recovered/Resolved]
  - Myalgia [Recovered/Resolved]
  - Pneumonia [Recovered/Resolved]
  - Pneumonia lipoid [Recovered/Resolved]
  - Off label use [Recovered/Resolved]
  - Therapeutic product ineffective for unapproved indication [Recovered/Resolved]
